FAERS Safety Report 10423988 (Version 1)
Quarter: 2014Q3

REPORT INFORMATION
  Report Type: Spontaneous
  Country: DK (occurrence: DK)
  Receive Date: 20140902
  Receipt Date: 20140902
  Transmission Date: 20150326
  Serious: Yes (Life-Threatening, Hospitalization)
  Sender: FDA-Public Use
  Company Number: DK-CELGENEUS-044-21880-14084576

PATIENT
  Age: 70 Year
  Sex: Female

DRUGS (5)
  1. REVLIMID [Suspect]
     Active Substance: LENALIDOMIDE
     Indication: PLASMA CELL MYELOMA
     Dosage: 15 MILLIGRAM
     Route: 048
     Dates: start: 20140703, end: 20140721
  2. PINEX [Concomitant]
     Active Substance: ACETAMINOPHEN
     Indication: PAIN
     Route: 065
  3. LANSOPRAZOLE. [Concomitant]
     Active Substance: LANSOPRAZOLE
     Indication: GASTRIC PH DECREASED
     Route: 065
  4. HJERTEMAGNYL [Concomitant]
     Active Substance: ASPIRIN\MAGNESIUM OXIDE
     Indication: THROMBOSIS PROPHYLAXIS
     Route: 065
  5. IMODIUM [Concomitant]
     Active Substance: LOPERAMIDE HYDROCHLORIDE
     Indication: DIARRHOEA
     Route: 065

REACTIONS (6)
  - Dyspnoea [Recovering/Resolving]
  - Pyrexia [Recovering/Resolving]
  - Lung infiltration [Recovering/Resolving]
  - Cough [Recovering/Resolving]
  - Respiratory disorder [Recovering/Resolving]
  - Interstitial lung disease [Recovered/Resolved]

NARRATIVE: CASE EVENT DATE: 201407
